FAERS Safety Report 5761473-5 (Version None)
Quarter: 2008Q2

REPORT INFORMATION
  Report Type: 
  Country: None (occurrence: None)
  Receive Date: 20080606
  Receipt Date: 20080602
  Transmission Date: 20081010
  Serious: Yes (Other)
  Sender: FDA-Public Use
  Company Number: TR-BOEHRINGER INGELHEIM GMBH, GERMANY-2008-BP-08609RO

PATIENT
  Age: 75 Year
  Sex: Female

DRUGS (4)
  1. TAMOXIFEN CITRATE [Suspect]
     Indication: BREAST CANCER
  2. FLUOROURACIL [Concomitant]
     Indication: GASTRIC CANCER
  3. MITOMYCIN [Concomitant]
     Indication: GASTRIC CANCER
  4. DOXORUBICIN HCL [Concomitant]
     Indication: GASTRIC CANCER

REACTIONS (3)
  - ADENOCARCINOMA OF THE CERVIX [None]
  - ENDOMETRIAL CANCER STAGE I [None]
  - GASTRIC CANCER [None]
